FAERS Safety Report 26049777 (Version 1)
Quarter: 2025Q4

REPORT INFORMATION
  Report Type: Spontaneous
  Country: US (occurrence: US)
  Receive Date: 20251115
  Receipt Date: 20251115
  Transmission Date: 20260117
  Serious: No
  Sender: SANOFI AVENTIS
  Company Number: US-SANOFI-02718115

PATIENT
  Age: 63 Year
  Sex: Male

DRUGS (2)
  1. LANTUS [Suspect]
     Active Substance: INSULIN GLARGINE
     Indication: Type 2 diabetes mellitus
     Dosage: 10 IU, QD
  2. LANTUS [Suspect]
     Active Substance: INSULIN GLARGINE
     Dosage: 15 IU, QD

REACTIONS (1)
  - Off label use [Unknown]
